FAERS Safety Report 10770641 (Version 1)
Quarter: 2015Q1

REPORT INFORMATION
  Report Type: Report from Study
  Country: US (occurrence: US)
  Receive Date: 20150206
  Receipt Date: 20150206
  Transmission Date: 20150721
  Serious: Yes (Hospitalization)
  Sender: FDA-Public Use
  Company Number: PHHO2012US012542

PATIENT
  Age: 24 Year
  Sex: Male
  Weight: 89.5 kg

DRUGS (3)
  1. PLACEBO [Suspect]
     Active Substance: UNSPECIFIED INGREDIENT
     Indication: ASTROCYTOMA, LOW GRADE
     Route: 048
  2. RAD001O [Suspect]
     Active Substance: UNSPECIFIED INGREDIENT
     Indication: ASTROCYTOMA, LOW GRADE
     Dosage: 5 MG, QD (2.53MG/M2)
     Route: 048
     Dates: start: 20110204, end: 20120822
  3. RAD001O [Suspect]
     Active Substance: UNSPECIFIED INGREDIENT
     Dosage: 5 MG, QD
     Route: 048
     Dates: start: 20120911

REACTIONS (2)
  - Viral upper respiratory tract infection [Recovering/Resolving]
  - Nasopharyngitis [Recovering/Resolving]

NARRATIVE: CASE EVENT DATE: 20120820
